FAERS Safety Report 8238382-5 (Version None)
Quarter: 2012Q1

REPORT INFORMATION
  Report Type: 
  Country: None (occurrence: None)
  Receive Date: 20120327
  Receipt Date: 20120322
  Transmission Date: 20120608
  Serious: Yes (Hospitalization, Congenital Anomaly, Other)
  Sender: FDA-Public Use
  Company Number: US-PFIZER INC-2010109632

PATIENT
  Sex: Male
  Weight: 0.9 kg

DRUGS (7)
  1. ZOLOFT [Suspect]
     Indication: ANXIETY
     Dosage: 100 MG, 1X/DAY
     Route: 064
     Dates: end: 20010601
  2. MAGNESIUM [Concomitant]
     Route: 064
  3. ZOLOFT [Suspect]
     Indication: DEPRESSION
     Dosage: 200 MG, UNK
     Route: 064
  4. AMPICILLIN [Concomitant]
     Route: 064
  5. MARIJUANA [Concomitant]
     Route: 064
  6. CELESTONE [Concomitant]
     Route: 064
  7. TERBUTALINE [Concomitant]
     Indication: TOCOLYSIS
     Dosage: UNK
     Route: 064

REACTIONS (21)
  - SPEECH DISORDER DEVELOPMENTAL [None]
  - SEPSIS [None]
  - ANAEMIA [None]
  - THYROXINE DECREASED [None]
  - INFANTILE APNOEIC ATTACK [None]
  - BICUSPID AORTIC VALVE [None]
  - FINE MOTOR DELAY [None]
  - NEONATAL HYPONATRAEMIA [None]
  - NEONATAL RESPIRATORY DISTRESS SYNDROME [None]
  - ADRENOGENITAL SYNDROME [None]
  - JAUNDICE NEONATAL [None]
  - FOETAL EXPOSURE DURING PREGNANCY [None]
  - INTRAVENTRICULAR HAEMORRHAGE NEONATAL [None]
  - CONGENITAL HYPOTHYROIDISM [None]
  - HYPOGLYCAEMIA [None]
  - PATENT DUCTUS ARTERIOSUS [None]
  - EOSINOPHILIA [None]
  - LUNG DISORDER [None]
  - AORTIC VALVE INCOMPETENCE [None]
  - NECROTISING ENTEROCOLITIS NEONATAL [None]
  - DEVELOPMENTAL DELAY [None]
